FAERS Safety Report 13049699 (Version 2)
Quarter: 2016Q4

REPORT INFORMATION
  Report Type: Spontaneous
  Country: JP (occurrence: JP)
  Receive Date: 20161221
  Receipt Date: 20161226
  Transmission Date: 20170207
  Serious: Yes (Other)
  Sender: FDA-Public Use
  Company Number: JP-ROCHE-1870455

PATIENT
  Age: 64 Year
  Sex: Male

DRUGS (1)
  1. AVASTIN [Suspect]
     Active Substance: BEVACIZUMAB
     Indication: RETINAL NEOVASCULARISATION
     Dosage: DOSAGE IS UNCERTAIN.
     Route: 031

REACTIONS (2)
  - Macular hole [Unknown]
  - Off label use [Unknown]
